FAERS Safety Report 4626053-3 (Version None)
Quarter: 2005Q2

REPORT INFORMATION
  Report Type: 
  Country: None (occurrence: None)
  Receive Date: 20050404
  Receipt Date: 20050329
  Transmission Date: 20051028
  Serious: Yes (Disabling)
  Sender: FDA-Public Use
  Company Number: US-MERCK-0503USA05069

PATIENT
  Age: 71 Year
  Sex: Female

DRUGS (5)
  1. FOSAMAX [Suspect]
     Indication: BONE DENSITY DECREASED
     Route: 048
     Dates: start: 20040101, end: 20050301
  2. PREDNISONE [Concomitant]
     Route: 065
  3. PREMARIN [Concomitant]
     Route: 065
  4. PRINZIDE [Concomitant]
     Route: 048
  5. LEVOTHROID [Concomitant]
     Route: 065

REACTIONS (3)
  - COUGH [None]
  - DYSPNOEA [None]
  - PULMONARY CONGESTION [None]
